FAERS Safety Report 7364788-2 (Version None)
Quarter: 2011Q1

REPORT INFORMATION
  Report Type: 
  Country: None (occurrence: None)
  Receive Date: 20110321
  Receipt Date: 20110307
  Transmission Date: 20110831
  Serious: Yes (Hospitalization, Other)
  Sender: FDA-Public Use
  Company Number: PHHY2011FR19642

PATIENT
  Age: 45 Year
  Sex: Male

DRUGS (1)
  1. VOLTARENE LP [Suspect]
     Indication: BACK PAIN
     Dosage: 75 MG, TID
     Dates: start: 20101118, end: 20101120

REACTIONS (5)
  - LEUKOCYTOCLASTIC VASCULITIS [None]
  - BLOOD CREATININE DECREASED [None]
  - BLOOD FIBRINOGEN INCREASED [None]
  - VASCULAR PURPURA [None]
  - PANCREATITIS [None]
